FAERS Safety Report 17658456 (Version 7)
Quarter: 2020Q4

REPORT INFORMATION
  Report Type: Spontaneous
  Country: JP (occurrence: JP)
  Receive Date: 20200412
  Receipt Date: 20201216
  Transmission Date: 20210113
  Serious: Yes (Life-Threatening, Other)
  Sender: FDA-Public Use
  Company Number: JP-BRISTOL-MYERS SQUIBB COMPANY-BMS-2020-030025

PATIENT
  Age: 68 Year
  Sex: Male
  Weight: 72.5 kg

DRUGS (3)
  1. OPDIVO [Suspect]
     Active Substance: NIVOLUMAB
     Dosage: 240 MILLIGRAM
     Route: 041
     Dates: start: 20200520
  2. YERVOY [Suspect]
     Active Substance: IPILIMUMAB
     Indication: MALIGNANT MELANOMA
     Dosage: 150 MILLIGRAM
     Route: 041
     Dates: start: 20191220, end: 20200109
  3. OPDIVO [Suspect]
     Active Substance: NIVOLUMAB
     Indication: MALIGNANT MELANOMA
     Dosage: 80 MILLIGRAM
     Route: 041
     Dates: start: 20191220, end: 20200109

REACTIONS (9)
  - Haemophagocytic lymphohistiocytosis [Recovered/Resolved]
  - Blood count abnormal [Unknown]
  - Liver disorder [Unknown]
  - Off label use [Unknown]
  - Metastases to skin [Unknown]
  - Pyrexia [Unknown]
  - Metastases to lung [Unknown]
  - Pain [Unknown]
  - Lymphadenopathy [Unknown]

NARRATIVE: CASE EVENT DATE: 20200117
